FAERS Safety Report 4876584-6 (Version None)
Quarter: 2006Q1

REPORT INFORMATION
  Report Type: 
  Country: None (occurrence: None)
  Receive Date: 20060110
  Receipt Date: 20051207
  Transmission Date: 20060701
  Serious: Yes (Hospitalization)
  Sender: FDA-Public Use
  Company Number: JP-BRISTOL-MYERS SQUIBB COMPANY-13213087

PATIENT
  Age: 84 Year
  Sex: Female

DRUGS (9)
  1. MEVALOTIN [Suspect]
     Indication: HYPERLIPIDAEMIA
     Route: 048
     Dates: start: 19920603, end: 20051202
  2. DOGMATYL [Concomitant]
     Indication: GASTRIC ULCER
     Dates: end: 20051202
  3. PURSENNID [Concomitant]
     Indication: CONSTIPATION
     Dates: end: 20051202
  4. JUVELA [Concomitant]
     Indication: PERIPHERAL VASCULAR DISORDER
     Dates: start: 20040607, end: 20051202
  5. DEPROMEL [Concomitant]
     Dates: end: 20051202
  6. MAGMITT [Concomitant]
     Indication: CONSTIPATION
     Dates: start: 20051121, end: 20051202
  7. LENDORMIN [Concomitant]
     Dates: start: 20020822, end: 20051130
  8. LUVOX [Concomitant]
     Indication: DEPRESSION
     Dates: start: 20050905, end: 20051202
  9. THIAMINE HCL [Concomitant]
     Indication: GASTRIC DISORDER
     Dates: start: 20040816, end: 20051202

REACTIONS (3)
  - HYPOTENSION [None]
  - PYREXIA [None]
  - RHABDOMYOLYSIS [None]
